FAERS Safety Report 8937058 (Version 3)
Quarter: 2013Q4

REPORT INFORMATION
  Report Type: Report from Study
  Country: IT (occurrence: IT)
  Receive Date: 20121129
  Receipt Date: 20131126
  Transmission Date: 20140711
  Serious: Yes (Hospitalization, Other)
  Sender: FDA-Public Use
  Company Number: PHHY2012IT109271

PATIENT
  Age: 59 Year
  Sex: Male

DRUGS (8)
  1. CERTICAN [Suspect]
     Indication: HEART TRANSPLANT
     Dosage: 0.5 MG, UNK
     Route: 048
     Dates: start: 20060629, end: 20130419
  2. CELLCEPT [Concomitant]
  3. TENORMIN [Concomitant]
  4. CARDURA [Concomitant]
  5. COUMADINE [Concomitant]
  6. KANRENOL [Concomitant]
  7. EPREX [Concomitant]
  8. LASIX [Concomitant]

REACTIONS (4)
  - Generalised oedema [Recovered/Resolved]
  - Thrombophlebitis [Recovered/Resolved]
  - Pleural effusion [Recovered/Resolved]
  - Type 2 diabetes mellitus [Unknown]
